FAERS Safety Report 10477530 (Version 5)
Quarter: 2015Q1

REPORT INFORMATION
  Report Type: Report from Study
  Country: CH (occurrence: CH)
  Receive Date: 20140926
  Receipt Date: 20150119
  Transmission Date: 20150720
  Serious: Yes (Hospitalization)
  Sender: FDA-Public Use
  Company Number: PHHO2014CH012968

PATIENT
  Age: 29 Month
  Sex: Male
  Weight: 12.3 kg

DRUGS (2)
  1. ACZ885 [Suspect]
     Active Substance: CANAKINUMAB
     Indication: CRYOPYRIN ASSOCIATED PERIODIC SYNDROME
     Dosage: 8 MG/KG, UNK
     Route: 058
     Dates: start: 20140606, end: 20140924
  2. ACZ885 [Suspect]
     Active Substance: CANAKINUMAB
     Dosage: 8 MG/KG, UNK
     Route: 058
     Dates: start: 20140929

REACTIONS (1)
  - Pneumonia [Recovered/Resolved]

NARRATIVE: CASE EVENT DATE: 20140921
